FAERS Safety Report 6293023-1 (Version None)
Quarter: 2009Q3

REPORT INFORMATION
  Report Type: 
  Country: None (occurrence: None)
  Receive Date: 20090731
  Receipt Date: 20090729
  Transmission Date: 20100115
  Serious: Yes (Death, Other)
  Sender: FDA-Public Use
  Company Number: JP-BRISTOL-MYERS SQUIBB COMPANY-14430565

PATIENT
  Age: 53 Year
  Sex: Male

DRUGS (8)
  1. REYATAZ [Suspect]
     Indication: HIV INFECTION
     Route: 048
     Dates: start: 20071218, end: 20080403
  2. EFAVIRENZ [Suspect]
     Indication: HIV INFECTION
     Dates: start: 20080404, end: 20080608
  3. NORVIR [Suspect]
     Indication: HIV INFECTION
     Route: 048
     Dates: start: 20071218, end: 20080403
  4. TRUVADA [Suspect]
     Indication: HIV INFECTION
     Dosage: 1DF-1TABS
     Route: 048
     Dates: start: 20070619, end: 20080608
  5. LOPINAVIR AND RITONAVIR [Suspect]
     Indication: HIV INFECTION
     Dosage: 1DF-4TABS
     Dates: start: 20070619, end: 20071217
  6. AMBISOME [Concomitant]
     Route: 042
     Dates: start: 20070501
  7. FLUCONAZOLE [Concomitant]
     Dates: start: 20070101
  8. ITRACONAZOLE [Concomitant]
     Dates: start: 20080101

REACTIONS (5)
  - ELECTROLYTE IMBALANCE [None]
  - ENCEPHALITIS FUNGAL [None]
  - INFECTION [None]
  - LIVER DISORDER [None]
  - MENINGITIS CRYPTOCOCCAL [None]
